FAERS Safety Report 6111465-1 (Version None)
Quarter: 2009Q1

REPORT INFORMATION
  Report Type: 
  Country: None (occurrence: None)
  Receive Date: 20090311
  Receipt Date: 20090304
  Transmission Date: 20090719
  Serious: Yes (Other)
  Sender: FDA-Public Use
  Company Number: NL-CELGENEUS-114-21880-09030317

PATIENT
  Sex: Female

DRUGS (2)
  1. REVLIMID [Suspect]
     Route: 048
  2. REVLIMID [Suspect]
     Route: 048

REACTIONS (2)
  - POLYNEUROPATHY [None]
  - RASH [None]
